FAERS Safety Report 6609405-1 (Version None)
Quarter: 2010Q1

REPORT INFORMATION
  Report Type: 
  Country: None (occurrence: None)
  Receive Date: 20100302
  Receipt Date: 20100216
  Transmission Date: 20100710
  Serious: Yes (Hospitalization, Other)
  Sender: FDA-Public Use
  Company Number: US-CELGENEUS-163-21880-10021634

PATIENT
  Sex: Female

DRUGS (2)
  1. REVLIMID [Suspect]
     Indication: MULTIPLE MYELOMA
     Route: 048
     Dates: start: 20091222, end: 20100125
  2. DECADRON [Concomitant]
     Indication: MULTIPLE MYELOMA
     Route: 065
     Dates: start: 20091222

REACTIONS (6)
  - BUNDLE BRANCH BLOCK LEFT [None]
  - CONSTIPATION [None]
  - DEHYDRATION [None]
  - FAILURE TO THRIVE [None]
  - FATIGUE [None]
  - HYPONATRAEMIA [None]
